FAERS Safety Report 7094163-X (Version None)
Quarter: 2010Q4

REPORT INFORMATION
  Report Type: 
  Country: None (occurrence: None)
  Receive Date: 20101110
  Receipt Date: 20101029
  Transmission Date: 20110411
  Serious: Yes (Other)
  Sender: FDA-Public Use
  Company Number: JP-GENZYME-RENA-1000821

PATIENT
  Sex: Female

DRUGS (7)
  1. RENAGEL [Suspect]
     Indication: HYPERPHOSPHATAEMIA
     Dosage: UNK
     Route: 048
  2. FOSRENOL [Suspect]
     Dosage: UNK
     Route: 065
  3. CALTAN [Suspect]
     Dosage: UNK
     Route: 065
  4. LASIX [Suspect]
     Route: 065
  5. FRANDOL [Suspect]
     Route: 065
  6. ADALAT [Suspect]
     Route: 065
  7. PROTECADIN [Suspect]
     Route: 065

REACTIONS (1)
  - HYPOGLYCAEMIA [None]
